FAERS Safety Report 14374177 (Version 1)
Quarter: 2018Q1

REPORT INFORMATION
  Report Type: Spontaneous
  Country: SE (occurrence: SE)
  Receive Date: 20180111
  Receipt Date: 20180111
  Transmission Date: 20180509
  Serious: Yes (Hospitalization)
  Sender: FDA-Public Use
  Company Number: SE-CIPLA LTD.-2018SE00225

PATIENT

DRUGS (1)
  1. TOPIRAMATE. [Suspect]
     Active Substance: TOPIRAMATE
     Dosage: UNK
     Route: 065
     Dates: start: 20171208, end: 20171211

REACTIONS (2)
  - Wheezing [Recovered/Resolved with Sequelae]
  - Productive cough [Recovered/Resolved with Sequelae]

NARRATIVE: CASE EVENT DATE: 20171208
